FAERS Safety Report 14515806 (Version 1)
Quarter: 2018Q1

REPORT INFORMATION
  Report Type: Spontaneous
  Country: US (occurrence: US)
  Receive Date: 20180211
  Receipt Date: 20180211
  Transmission Date: 20180509
  Serious: No
  Sender: FDA-Public Use
  Company Number: US-GLAXOSMITHKLINE-US2018GSK022204

PATIENT
  Age: 60 Year
  Sex: Female

DRUGS (1)
  1. VALACICLOVIR HYDROCHLORIDE TABLET [Suspect]
     Active Substance: VALACYCLOVIR HYDROCHLORIDE
     Indication: GENITAL HERPES

REACTIONS (3)
  - Drug ineffective [Unknown]
  - Herpes virus infection [Unknown]
  - Product substitution issue [Unknown]

NARRATIVE: CASE EVENT DATE: 201711
